FAERS Safety Report 4465136-8 (Version None)
Quarter: 2004Q3

REPORT INFORMATION
  Report Type: 
  Country: None (occurrence: None)
  Receive Date: 20040928
  Receipt Date: 20040928
  Transmission Date: 20050211
  Serious: No
  Sender: FDA-Public Use
  Company Number: None

PATIENT
  Sex: Male
  Weight: 79.3795 kg

DRUGS (1)
  1. ALLOPURINOL TAB [Suspect]
     Dates: start: 20040918, end: 20040925

REACTIONS (5)
  - DYSPNOEA [None]
  - FEELING ABNORMAL [None]
  - MUSCLE CRAMP [None]
  - SENSORY LOSS [None]
  - URTICARIA [None]
